FAERS Safety Report 14626032 (Version 2)
Quarter: 2018Q1

REPORT INFORMATION
  Report Type: Report from Study
  Country: US (occurrence: US)
  Receive Date: 20180312
  Receipt Date: 20180319
  Transmission Date: 20180509
  Serious: Yes (Other)
  Sender: FDA-Public Use
  Company Number: US-AMGEN-USASL2018030376

PATIENT
  Sex: Male

DRUGS (1)
  1. ENBREL [Suspect]
     Active Substance: ETANERCEPT
     Indication: PSORIATIC ARTHROPATHY
     Dosage: UNK
     Route: 065

REACTIONS (10)
  - Musculoskeletal stiffness [Not Recovered/Not Resolved]
  - Pain in extremity [Not Recovered/Not Resolved]
  - Atrial fibrillation [Recovered/Resolved]
  - Pneumonia [Unknown]
  - Dizziness [Unknown]
  - Tooth fracture [Not Recovered/Not Resolved]
  - Asthma [Unknown]
  - Adverse event [Not Recovered/Not Resolved]
  - Psoriatic arthropathy [Unknown]
  - Influenza [Unknown]

NARRATIVE: CASE EVENT DATE: 2017
